FAERS Safety Report 20107918 (Version 1)
Quarter: 2021Q4

REPORT INFORMATION
  Report Type: Spontaneous
  Country: US (occurrence: US)
  Receive Date: 20211124
  Receipt Date: 20211124
  Transmission Date: 20220303
  Serious: No
  Sender: FDA-Public Use
  Company Number: US-PERRIGO-21US006120

PATIENT
  Age: 73 Year
  Sex: Male
  Weight: 61.224 kg

DRUGS (5)
  1. POLYETHYLENE GLYCOL 3350 [Suspect]
     Active Substance: POLYETHYLENE GLYCOL 3350
     Indication: Constipation
     Dosage: 17 G OR A LITTLE LESS, QD
     Route: 048
     Dates: start: 2018, end: 2021
  2. POLYETHYLENE GLYCOL 3350 [Suspect]
     Active Substance: POLYETHYLENE GLYCOL 3350
     Dosage: 9 TO 12 G, QD
     Route: 048
     Dates: start: 2021
  3. AMLODIPINE [Concomitant]
     Active Substance: AMLODIPINE BESYLATE
     Indication: Hypertension
     Dosage: UNK
     Route: 065
  4. CLONIDINE [Concomitant]
     Active Substance: CLONIDINE
     Indication: Anxiety
     Dosage: UNK
     Route: 065
  5. ACETAMINOPHEN\OXYCODONE HYDROCHLORIDE [Concomitant]
     Active Substance: ACETAMINOPHEN\OXYCODONE HYDROCHLORIDE
     Indication: Anxiety
     Dosage: UNK
     Route: 065

REACTIONS (4)
  - Diarrhoea [Not Recovered/Not Resolved]
  - Therapeutic product effect decreased [Not Recovered/Not Resolved]
  - Underdose [Unknown]
  - Incorrect product administration duration [Unknown]

NARRATIVE: CASE EVENT DATE: 20180101
